FAERS Safety Report 18605054 (Version 1)
Quarter: 2020Q4

REPORT INFORMATION
  Report Type: Spontaneous
  Country: US (occurrence: US)
  Receive Date: 20201211
  Receipt Date: 20201211
  Transmission Date: 20210114
  Serious: No
  Sender: FDA-Public Use
  Company Number: US-TAKEDA-2020TUS053915

PATIENT
  Sex: Male
  Weight: 59.86 kg

DRUGS (19)
  1. DIPHENHYDRAMINE. [Concomitant]
     Active Substance: DIPHENHYDRAMINE
  2. ACIDOPHILUS [Concomitant]
     Active Substance: LACTOBACILLUS ACIDOPHILUS
  3. SODIUM [Concomitant]
     Active Substance: SODIUM
  4. TRAZODONE [Concomitant]
     Active Substance: TRAZODONE HYDROCHLORIDE
  5. CURCUMIN [Concomitant]
     Active Substance: CURCUMIN
  6. PREDNISONE [PREDNISONE ACETATE] [Concomitant]
     Active Substance: PREDNISONE ACETATE
  7. AMBIEN CR [Concomitant]
     Active Substance: ZOLPIDEM TARTRATE
  8. GAMMAGARD LIQUID [Suspect]
     Active Substance: HUMAN IMMUNOGLOBULIN G
     Indication: POLYMYOSITIS
     Dosage: 40 GRAM, QD
     Route: 042
     Dates: start: 20170508
  9. ATENOLOL. [Concomitant]
     Active Substance: ATENOLOL
  10. GABAPENTIN. [Concomitant]
     Active Substance: GABAPENTIN
  11. VITAMIN D3 [Concomitant]
     Active Substance: CHOLECALCIFEROL
  12. EPINEPHRINE. [Concomitant]
     Active Substance: EPINEPHRINE
  13. ZOLPIDEM [Concomitant]
     Active Substance: ZOLPIDEM TARTRATE
  14. ACETAMINOPHEN. [Concomitant]
     Active Substance: ACETAMINOPHEN
  15. HEPARIN [Concomitant]
     Active Substance: HEPARIN SODIUM
  16. CHLORIDE [Concomitant]
     Active Substance: CHLORIDE ION
  17. DRONABINOL. [Concomitant]
     Active Substance: DRONABINOL
  18. L-ARGININE [ARGININE] [Concomitant]
     Active Substance: ARGININE
  19. OCUVITE [ASCORBIC ACID;BETACAROTENE;COPPER;TOCOFERSOLAN;ZINC] [Concomitant]

REACTIONS (3)
  - Arthralgia [Unknown]
  - Product use in unapproved indication [Unknown]
  - Fall [Unknown]
